FAERS Safety Report 6400057-2 (Version None)
Quarter: 2009Q4

REPORT INFORMATION
  Report Type: 
  Country: None (occurrence: None)
  Receive Date: 20091014
  Receipt Date: 20091008
  Transmission Date: 20100525
  Serious: Yes (Death)
  Sender: FDA-Public Use
  Company Number: A0811212A

PATIENT
  Age: 65 Year
  Sex: Male

DRUGS (5)
  1. SERETIDE [Suspect]
     Indication: DRUG USE FOR UNKNOWN INDICATION
     Route: 055
  2. SPIRONOLACTONE [Concomitant]
  3. FUROSEMIDE [Concomitant]
  4. ASPIRIN FORTE [Concomitant]
  5. OXYGEN [Concomitant]

REACTIONS (1)
  - LUNG DISORDER [None]
